FAERS Safety Report 15189797 (Version 2)
Quarter: 2018Q4

REPORT INFORMATION
  Report Type: Spontaneous
  Country: US (occurrence: US)
  Receive Date: 20180724
  Receipt Date: 20181023
  Transmission Date: 20190204
  Serious: No
  Sender: FDA-Public Use
  Company Number: US-BAUSCH-BL-2018-018143

PATIENT
  Sex: Male

DRUGS (1)
  1. ZYLET [Suspect]
     Active Substance: LOTEPREDNOL ETABONATE\TOBRAMYCIN
     Indication: PRODUCT USED FOR UNKNOWN INDICATION
     Dosage: USED THE PRODUCT FOR APPROXIMATELY TWO OR THREE WEEKS
     Route: 065

REACTIONS (1)
  - Drug ineffective [Not Recovered/Not Resolved]
